FAERS Safety Report 13856297 (Version 16)
Quarter: 2019Q3

REPORT INFORMATION
  Report Type: Report from Study
  Country: US (occurrence: US)
  Receive Date: 20170810
  Receipt Date: 20190806
  Transmission Date: 20191004
  Serious: Yes (Hospitalization)
  Sender: FDA-Public Use
  Company Number: US-ACTELION-A-NJ2017-157933

PATIENT
  Age: 48 Year
  Sex: Female
  Weight: 84.81 kg

DRUGS (7)
  1. UPTRAVI [Suspect]
     Active Substance: SELEXIPAG
     Indication: PULMONARY HYPERTENSION
     Dosage: 600 MCG, BID
     Route: 048
  2. LETAIRIS [Suspect]
     Active Substance: AMBRISENTAN
     Indication: PULMONARY ARTERIAL HYPERTENSION
     Dosage: 10 MG, QD
     Route: 065
     Dates: start: 20090706
  3. ADCIRCA [Concomitant]
     Active Substance: TADALAFIL
  4. UPTRAVI [Suspect]
     Active Substance: SELEXIPAG
     Dosage: 1600 MCG, BID
     Route: 048
  5. REMODULIN [Suspect]
     Active Substance: TREPROSTINIL
     Indication: PRODUCT USED FOR UNKNOWN INDICATION
     Route: 065
  6. UPTRAVI [Suspect]
     Active Substance: SELEXIPAG
     Dosage: 800 MCG, QD
     Route: 048
  7. UPTRAVI [Suspect]
     Active Substance: SELEXIPAG
     Dosage: 800 MCG, BID
     Route: 048

REACTIONS (25)
  - Hypotension [Unknown]
  - Product dose omission [Unknown]
  - Sinus congestion [Not Recovered/Not Resolved]
  - Nausea [Not Recovered/Not Resolved]
  - Generalised oedema [Unknown]
  - Unevaluable event [Unknown]
  - Decreased appetite [Unknown]
  - Vomiting [Recovering/Resolving]
  - Headache [Not Recovered/Not Resolved]
  - Dyspnoea [Unknown]
  - Nasal congestion [Unknown]
  - Diarrhoea [Unknown]
  - Infusion site pain [Unknown]
  - Pneumonia [Unknown]
  - Syncope [Unknown]
  - Therapy change [Unknown]
  - Pain [Unknown]
  - Feeling abnormal [Unknown]
  - Malaise [Not Recovered/Not Resolved]
  - Cardiac failure congestive [Unknown]
  - Pain in jaw [Unknown]
  - Sinus pain [Not Recovered/Not Resolved]
  - Fatigue [Recovering/Resolving]
  - Oxygen consumption increased [Unknown]
  - Dizziness [Unknown]

NARRATIVE: CASE EVENT DATE: 20180312
